FAERS Safety Report 21321225 (Version 3)
Quarter: 2022Q4

REPORT INFORMATION
  Report Type: Report from Study
  Country: CZ (occurrence: CZ)
  Receive Date: 20220912
  Receipt Date: 20221129
  Transmission Date: 20230113
  Serious: Yes (Other)
  Sender: FDA-Public Use
  Company Number: CZ-UCBSA-2022052936

PATIENT
  Sex: Male

DRUGS (5)
  1. BRIVARACETAM [Suspect]
     Active Substance: BRIVARACETAM
     Indication: Epilepsy
     Dosage: 50 MILLIGRAM, 2X/DAY (BID)
     Route: 048
     Dates: start: 20220623, end: 20220811
  2. VALPROATE SODIUM [Concomitant]
     Active Substance: VALPROATE SODIUM
     Indication: Epilepsy
     Dosage: UNK
  3. LACOSAMIDE GLENMARK [Concomitant]
     Indication: Epilepsy
     Dosage: UNK
  4. TISERCIN [LEVOMEPROMAZINE] [Concomitant]
     Indication: Epilepsy
     Dosage: UNK
  5. FLUPENTIXOL DECANOATE [Concomitant]
     Active Substance: FLUPENTIXOL DECANOATE
     Indication: Epilepsy
     Dosage: UNK

REACTIONS (7)
  - Schizophrenia [Recovered/Resolved]
  - Behaviour disorder [Recovered/Resolved]
  - Seizure [Recovered/Resolved]
  - Focal dyscognitive seizures [Recovered/Resolved]
  - Fall [Recovered/Resolved]
  - Confusional state [Recovered/Resolved]
  - Tremor [Recovered/Resolved]

NARRATIVE: CASE EVENT DATE: 20220801
